FAERS Safety Report 8947702 (Version 1)
Quarter: 2012Q4

REPORT INFORMATION
  Report Type: 
  Country: JP (occurrence: JP)
  Receive Date: 20121205
  Receipt Date: 20121205
  Transmission Date: 20130627
  Serious: Yes (Hospitalization)
  Sender: FDA-Public Use
  Company Number: PHHY2012JP111318

PATIENT
  Age: 83 Year
  Sex: Male

DRUGS (3)
  1. RIFAMPICIN SANDOZ [Suspect]
     Indication: ATYPICAL MYCOBACTERIAL INFECTION
     Dosage: 450 mg per day
  2. ESANBUTOL [Concomitant]
     Indication: ATYPICAL MYCOBACTERIAL INFECTION
     Dosage: 750 mg per day
  3. CLARITHROMYCIN [Concomitant]
     Indication: ATYPICAL MYCOBACTERIAL INFECTION
     Dosage: 800 mg per day

REACTIONS (1)
  - Adrenal insufficiency [Recovering/Resolving]
